FAERS Safety Report 7771233-1 (Version None)
Quarter: 2011Q3

REPORT INFORMATION
  Report Type: 
  Country: None (occurrence: None)
  Receive Date: 20110922
  Receipt Date: 20110504
  Transmission Date: 20111222
  Serious: No
  Sender: FDA-Public Use
  Company Number: US-ASTRAZENECA-2011SE27292

PATIENT
  Age: 44 Year
  Sex: Female
  Weight: 107 kg

DRUGS (4)
  1. SEROQUEL [Suspect]
     Indication: ANXIETY
     Route: 048
  2. SEROQUEL [Suspect]
     Indication: PANIC DISORDER
     Route: 048
  3. DEPAKOTE [Concomitant]
  4. SEROQUEL [Suspect]
     Indication: BIPOLAR II DISORDER
     Route: 048

REACTIONS (4)
  - ALOPECIA [None]
  - WEIGHT INCREASED [None]
  - FATIGUE [None]
  - HYPERSOMNIA [None]
